FAERS Safety Report 10023469 (Version 1)
Quarter: 2014Q1

REPORT INFORMATION
  Report Type: Spontaneous
  Country: US (occurrence: None)
  Receive Date: 20140319
  Receipt Date: 20140319
  Transmission Date: 20141002
  Serious: Yes (Other)
  Sender: FDA-Public Use
  Company Number: None

PATIENT
  Age: 60 Year
  Sex: Female
  Weight: 72.58 kg

DRUGS (2)
  1. FLUOXETINE [Suspect]
     Indication: DEPRESSION
     Dosage: 1 CAPSULE
     Route: 048
     Dates: start: 20140220, end: 20140318
  2. FLUOXETINE [Suspect]
     Indication: DEPRESSION
     Dosage: 1 CAPSULE
     Route: 048
     Dates: start: 20140220, end: 20140318

REACTIONS (4)
  - Product substitution issue [None]
  - Product quality issue [None]
  - Drug ineffective [None]
  - Economic problem [None]
